FAERS Safety Report 18420142 (Version 1)
Quarter: 2020Q4

REPORT INFORMATION
  Report Type: Spontaneous
  Country: JP (occurrence: JP)
  Receive Date: 20201023
  Receipt Date: 20201023
  Transmission Date: 20210114
  Serious: Yes (Other)
  Sender: FDA-Public Use
  Company Number: JP-AMNEAL PHARMACEUTICALS-2020-AMRX-03316

PATIENT
  Age: 29 Year
  Sex: Female

DRUGS (7)
  1. VALPROIC ACID SODIUM [Concomitant]
     Active Substance: VALPROIC ACID
     Dosage: 800 MILLIGRAM, DAILY (FROM HOSPITAL DAY 3)
     Route: 065
     Dates: start: 2013
  2. VALPROIC ACID SODIUM [Concomitant]
     Active Substance: VALPROIC ACID
     Indication: EPILEPSY
     Dosage: 800 MILLIGRAM, DAILY
     Route: 065
     Dates: start: 201204, end: 2012
  3. VALPROIC ACID SODIUM [Concomitant]
     Active Substance: VALPROIC ACID
     Dosage: 600 MILLIGRAM, DAILY
     Route: 065
     Dates: start: 201212
  4. LEVETIRACETAM. [Suspect]
     Active Substance: LEVETIRACETAM
     Indication: GENERALISED TONIC-CLONIC SEIZURE
     Dosage: 1000 MILLIGRAM, DAILY (FROM HOSPITAL DAY 3
     Route: 065
     Dates: start: 2013, end: 2013
  5. PHENYTOIN. [Concomitant]
     Active Substance: PHENYTOIN
     Indication: GENERALISED TONIC-CLONIC SEIZURE
     Dosage: 250 MILLIGRAM, DAILY (DAY1 AND 2)
     Route: 042
     Dates: start: 201309, end: 2013
  6. VALPROIC ACID SODIUM [Concomitant]
     Active Substance: VALPROIC ACID
     Indication: GENERALISED TONIC-CLONIC SEIZURE
     Dosage: 1000 MILLIGRAM, DAILY
     Route: 048
     Dates: start: 2010
  7. VALPROIC ACID SODIUM [Concomitant]
     Active Substance: VALPROIC ACID
     Dosage: 400 MILLIGRAM, DAILY
     Route: 065
     Dates: start: 201303, end: 2013

REACTIONS (1)
  - Rhabdomyolysis [Recovering/Resolving]

NARRATIVE: CASE EVENT DATE: 2013
